FAERS Safety Report 8807854 (Version 5)
Quarter: 2013Q3

REPORT INFORMATION
  Report Type: Report from Study
  Country: JP (occurrence: JP)
  Receive Date: 20120925
  Receipt Date: 20130910
  Transmission Date: 20140515
  Serious: Yes (Death, Life-Threatening, Hospitalization)
  Sender: FDA-Public Use
  Company Number: JP-GLAXOSMITHKLINE-B0832079A

PATIENT
  Age: 50 Year
  Sex: Female
  Weight: 42 kg

DRUGS (13)
  1. TYKERB [Suspect]
     Indication: BREAST CANCER
     Route: 048
     Dates: start: 20120106, end: 20120216
  2. TYKERB [Suspect]
     Indication: BREAST CANCER
     Route: 048
     Dates: start: 20120323, end: 20120802
  3. TYKERB [Suspect]
     Indication: BREAST CANCER
     Route: 048
     Dates: start: 20121009, end: 20121023
  4. XELODA [Suspect]
     Indication: BREAST CANCER
     Route: 048
     Dates: start: 20120106, end: 20120210
  5. XELODA [Suspect]
     Indication: BREAST CANCER
     Route: 048
     Dates: start: 20120502, end: 20120802
  6. XELODA [Suspect]
     Indication: BREAST CANCER
     Route: 048
     Dates: start: 20121009, end: 20121023
  7. PYDOXAL [Concomitant]
     Indication: PALMAR-PLANTAR ERYTHRODYSAESTHESIA SYNDROME
     Route: 048
     Dates: start: 20120106, end: 20121029
  8. BIO-THREE [Concomitant]
     Indication: DIARRHOEA
     Route: 048
     Dates: start: 20120106, end: 20121025
  9. ZOMETA [Concomitant]
     Indication: PROPHYLAXIS
     Route: 042
     Dates: start: 20120127, end: 20120803
  10. PREDONINE [Concomitant]
     Indication: BRAIN OEDEMA
     Route: 048
     Dates: start: 20120106, end: 20120807
  11. LOPEMIN [Concomitant]
     Indication: DIARRHOEA
     Route: 048
     Dates: start: 20120713, end: 20120810
  12. MAGLAX [Concomitant]
     Indication: CONSTIPATION
     Route: 048
     Dates: start: 20120818, end: 20121025
  13. NAUZELIN [Concomitant]
     Indication: NAUSEA
     Route: 048
     Dates: start: 20120803, end: 20121025

REACTIONS (8)
  - Retroperitoneal abscess [Recovered/Resolved]
  - Subcutaneous abscess [Not Recovered/Not Resolved]
  - Sepsis [Fatal]
  - Diarrhoea [Recovered/Resolved]
  - Skin ulcer [Recovering/Resolving]
  - Paronychia [Recovered/Resolved]
  - Diarrhoea [Recovered/Resolved]
  - Paronychia [Not Recovered/Not Resolved]
